FAERS Safety Report 16492898 (Version 1)
Quarter: 2019Q2

REPORT INFORMATION
  Report Type: Spontaneous
  Country: US (occurrence: US)
  Receive Date: 20190628
  Receipt Date: 20190628
  Transmission Date: 20190711
  Serious: Yes (Other)
  Sender: FDA-Public Use
  Company Number: US-TEVA-2019-US-1066890

PATIENT
  Age: 57 Year
  Sex: Male
  Weight: 99 kg

DRUGS (1)
  1. GRANIX [Suspect]
     Active Substance: TBO-FILGRASTIM
     Indication: NEUTROPENIA
     Dosage: 480 MCG STANDARD DOSE
     Route: 065
     Dates: start: 20190613

REACTIONS (7)
  - Interstitial lung disease [Unknown]
  - Cardiomegaly [Unknown]
  - Lung infiltration [Unknown]
  - Acquired diaphragmatic eventration [Unknown]
  - Therapy non-responder [Unknown]
  - White blood cell count abnormal [Unknown]
  - Pulmonary congestion [Unknown]
